FAERS Safety Report 10112325 (Version 1)
Quarter: 2014Q2

REPORT INFORMATION
  Report Type: Spontaneous
  Country: GB (occurrence: GB)
  Receive Date: 20140425
  Receipt Date: 20140425
  Transmission Date: 20141212
  Serious: Yes (Other)
  Sender: FDA-Public Use
  Company Number: GB-PFIZER INC-2014114702

PATIENT
  Age: 21 Year
  Sex: Female
  Weight: 50.8 kg

DRUGS (3)
  1. SERTRALINE HCL [Suspect]
     Dosage: 50 MG, UNK
     Route: 048
     Dates: start: 20140331, end: 20140331
  2. ACICLOVIR [Concomitant]
     Dosage: UNK
  3. RIGEVIDON [Concomitant]
     Dosage: UNK

REACTIONS (13)
  - Psychomotor hyperactivity [Recovered/Resolved]
  - Euphoric mood [Recovered/Resolved]
  - Dizziness [Recovered/Resolved]
  - Tremor [Recovered/Resolved]
  - Malaise [Recovered/Resolved]
  - Anxiety [Recovered/Resolved]
  - Tachyphrenia [Recovered/Resolved]
  - Palpitations [Recovered/Resolved]
  - Insomnia [Recovered/Resolved]
  - Dry mouth [Recovered/Resolved]
  - Decreased appetite [Recovered/Resolved]
  - Asthenia [Recovered/Resolved]
  - Tearfulness [Recovered/Resolved]
